FAERS Safety Report 5918732-2 (Version None)
Quarter: 2008Q4

REPORT INFORMATION
  Report Type: 
  Country: None (occurrence: None)
  Receive Date: 20081015
  Receipt Date: 20080708
  Transmission Date: 20090506
  Serious: No
  Sender: FDA-Public Use
  Company Number: US-ASTRAZENECA-2008UW13641

PATIENT
  Age: 72 Year
  Sex: Female
  Weight: 99.8 kg

DRUGS (12)
  1. SYMBICORT [Suspect]
     Indication: ASTHMA
     Dosage: 80/4.5 UG
     Route: 055
     Dates: start: 20080101
  2. SPIRIVA [Concomitant]
  3. ALLEGRA [Concomitant]
  4. SINGULAIR [Concomitant]
  5. PROVENTIL [Concomitant]
  6. LISINOPRIL HCT [Concomitant]
  7. ZANTAC [Concomitant]
  8. REQUIP [Concomitant]
  9. BUPROPION HCL [Concomitant]
  10. GENERIC LASIX [Concomitant]
  11. ENABLEX [Concomitant]
  12. CALCIUM [Concomitant]

REACTIONS (4)
  - CANDIDIASIS [None]
  - DRY MOUTH [None]
  - DYSPHONIA [None]
  - DYSPNOEA [None]
